FAERS Safety Report 25875847 (Version 1)
Quarter: 2025Q4

REPORT INFORMATION
  Report Type: Spontaneous
  Country: CA (occurrence: CA)
  Receive Date: 20251003
  Receipt Date: 20251003
  Transmission Date: 20260117
  Serious: Yes (Other)
  Sender: AUROBINDO
  Company Number: CA-AUROBINDO-AUR-APL-2025-049464

PATIENT
  Age: 75 Year
  Sex: Male

DRUGS (4)
  1. DIGOXIN [Interacting]
     Active Substance: DIGOXIN
     Indication: Supraventricular tachycardia
     Dosage: 0.125 MILLIGRAM
     Route: 048
  2. DIGOXIN [Interacting]
     Active Substance: DIGOXIN
     Indication: Atrial fibrillation
  3. AMIODARONE [Interacting]
     Active Substance: AMIODARONE
     Indication: Atrial fibrillation
     Dosage: 200 MILLIGRAM, ONCE A DAY
     Route: 048
  4. TAGRISSO [Interacting]
     Active Substance: OSIMERTINIB
     Indication: Product used for unknown indication
     Dosage: UNK
     Route: 065

REACTIONS (4)
  - Cardioactive drug level increased [Unknown]
  - Toxicity to various agents [Unknown]
  - Drug interaction [Unknown]
  - Drug-disease interaction [Unknown]
